FAERS Safety Report 4974353-X (Version None)
Quarter: 2006Q2

REPORT INFORMATION
  Report Type: 
  Country: None (occurrence: None)
  Receive Date: 20060417
  Receipt Date: 20060307
  Transmission Date: 20061013
  Serious: Yes (Hospitalization, Other)
  Sender: FDA-Public Use
  Company Number: US-MERCK-0603USA01379

PATIENT
  Age: 60 Year
  Sex: Female
  Weight: 96 kg

DRUGS (1)
  1. VIOXX [Suspect]
     Indication: ARTHRITIS
     Route: 048
     Dates: start: 20000614, end: 20040818

REACTIONS (17)
  - ABDOMINAL PAIN [None]
  - ARRHYTHMIA [None]
  - BRADYCARDIA [None]
  - CAROTID ARTERY STENOSIS [None]
  - CEREBROVASCULAR ACCIDENT [None]
  - CHOLELITHIASIS [None]
  - CONTUSION [None]
  - DYSLIPIDAEMIA [None]
  - HAEMORRHOIDS [None]
  - HYPERTENSIVE HEART DISEASE [None]
  - INGROWING NAIL [None]
  - MYOCARDIAL INFARCTION [None]
  - ORGAN FAILURE [None]
  - PULMONARY EMBOLISM [None]
  - RECTAL POLYP [None]
  - TRANSIENT ISCHAEMIC ATTACK [None]
  - URTICARIA [None]
